FAERS Safety Report 15334580 (Version 1)
Quarter: 2018Q4

REPORT INFORMATION
  Report Type: Spontaneous
  Country: JP (occurrence: JP)
  Receive Date: 20180830
  Receipt Date: 20180830
  Transmission Date: 20190204
  Serious: Yes (Disabling)
  Sender: FDA-Public Use
  Company Number: JP-TEVA-2018-JP-004466J

PATIENT
  Age: 43 Year
  Sex: Female

DRUGS (1)
  1. FENOFIBRATE TABLET 53.3MG TAKEDA TEVA [Suspect]
     Active Substance: FENOFIBRATE
     Indication: DYSLIPIDAEMIA
     Dosage: 106.6 MILLIGRAM DAILY;
     Route: 048
     Dates: start: 20180802, end: 20180816

REACTIONS (1)
  - Drug-induced liver injury [Recovering/Resolving]

NARRATIVE: CASE EVENT DATE: 20180816
